FAERS Safety Report 23323409 (Version 1)
Quarter: 2023Q4

REPORT INFORMATION
  Report Type: Spontaneous
  Country: US (occurrence: None)
  Receive Date: 20231220
  Receipt Date: 20231220
  Transmission Date: 20240110
  Serious: No
  Sender: FDA-Public Use
  Company Number: US-ROCHE-3418123

PATIENT
  Sex: Female
  Weight: 86.26 kg

DRUGS (1)
  1. RITUXAN [Suspect]
     Active Substance: RITUXIMAB
     Indication: Rheumatoid arthritis
     Dosage: ONGOING: UNKNOWN
     Route: 041
     Dates: start: 2021

REACTIONS (4)
  - Oral discomfort [Unknown]
  - Malaise [Unknown]
  - Off label use [Unknown]
  - Drug ineffective [Unknown]
